FAERS Safety Report 25343638 (Version 3)
Quarter: 2025Q2

REPORT INFORMATION
  Report Type: Spontaneous
  Country: JP (occurrence: JP)
  Receive Date: 20250521
  Receipt Date: 20250626
  Transmission Date: 20250716
  Serious: Yes (Hospitalization, Other)
  Sender: REGENERON
  Company Number: JP-REGENERON PHARMACEUTICALS, INC.-2025-080576

PATIENT
  Age: 55 Year
  Sex: Female

DRUGS (11)
  1. LIBTAYO [Suspect]
     Active Substance: CEMIPLIMAB-RWLC
     Indication: Cervix carcinoma recurrent
     Dosage: 350 MG, Q3W
     Dates: start: 20230425
  2. LIBTAYO [Suspect]
     Active Substance: CEMIPLIMAB-RWLC
     Dosage: 350 MG, Q3W
  3. CORTRIL [Concomitant]
     Active Substance: HYDROCORTISONE
  4. LEVOTHYROXINE SODIUM [Concomitant]
     Active Substance: LEVOTHYROXINE SODIUM
  5. FEBUXOSTAT [Concomitant]
     Active Substance: FEBUXOSTAT
  6. FEXOFENADINE HYDROCHLORIDE TOWA [Concomitant]
  7. PANDEL [Concomitant]
     Active Substance: HYDROCORTISONE PROBUTATE
  8. SHAKUYAKUKANZOTO [Concomitant]
     Active Substance: HERBALS
  9. GLYCOPYRROLATE\INDACATEROL\MOMETASONE FUROATE [Concomitant]
     Active Substance: GLYCOPYRROLATE\INDACATEROL\MOMETASONE FUROATE
  10. VONOPRAZAN FUMARATE [Concomitant]
     Active Substance: VONOPRAZAN FUMARATE
  11. CALONAL [Concomitant]
     Active Substance: ACETAMINOPHEN

REACTIONS (3)
  - Type 1 diabetes mellitus [Recovering/Resolving]
  - Thirst [Unknown]
  - Malaise [Unknown]

NARRATIVE: CASE EVENT DATE: 20250401
